FAERS Safety Report 19776294 (Version 1)
Quarter: 2021Q3

REPORT INFORMATION
  Report Type: Report from Study
  Country: CO (occurrence: CO)
  Receive Date: 20210902
  Receipt Date: 20210902
  Transmission Date: 20211014
  Serious: Yes (Hospitalization)
  Sender: FDA-Public Use
  Company Number: CO-BRISTOL-MYERS SQUIBB COMPANY-BMS-2021-066651

PATIENT
  Age: 52 Year
  Sex: Female
  Weight: 68 kg

DRUGS (1)
  1. NIVOLUMAB [Suspect]
     Active Substance: NIVOLUMAB
     Indication: MALIGNANT MELANOMA
     Dosage: 204 MILLIGRAM, EVERY 15 DAYS
     Route: 042
     Dates: start: 20210714

REACTIONS (7)
  - Pruritus [Recovering/Resolving]
  - Discomfort [Unknown]
  - Dizziness [Recovering/Resolving]
  - Off label use [Unknown]
  - Discouragement [Recovering/Resolving]
  - Nausea [Recovering/Resolving]
  - Wound haemorrhage [Recovering/Resolving]

NARRATIVE: CASE EVENT DATE: 20210726
